APPROVED DRUG PRODUCT: PROPRANOLOL HYDROCHLORIDE
Active Ingredient: PROPRANOLOL HYDROCHLORIDE
Strength: 1MG/ML **Federal Register determination that product was not discontinued or withdrawn for safety or effectiveness reasons**
Dosage Form/Route: INJECTABLE;INJECTION
Application: N016419 | Product #001
Applicant: BAXTER HEALTHCARE CORP ANESTHESIA CRITICAL CARE
Approved: Approved Prior to Jan 1, 1982 | RLD: Yes | RS: No | Type: DISCN